FAERS Safety Report 7434207-6 (Version None)
Quarter: 2011Q2

REPORT INFORMATION
  Report Type: 
  Country: None (occurrence: None)
  Receive Date: 20110425
  Receipt Date: 20110414
  Transmission Date: 20111010
  Serious: Yes (Hospitalization)
  Sender: FDA-Public Use
  Company Number: FR-AMGEN-FRASP2011020844

PATIENT
  Age: 75 Year
  Sex: Female

DRUGS (2)
  1. NOVATREX                           /00113801/ [Suspect]
     Dosage: 7.5 MG, WEEKLY
     Route: 048
     Dates: end: 20060501
  2. ENBREL [Suspect]
     Indication: RHEUMATOID ARTHRITIS
     Dosage: 50 MG, WEEKLY
     Route: 058
     Dates: start: 20050101

REACTIONS (1)
  - BREAST CANCER [None]
